FAERS Safety Report 8545507-0 (Version None)
Quarter: 2012Q3

REPORT INFORMATION
  Report Type: 
  Country: None (occurrence: None)
  Receive Date: 20120727
  Receipt Date: 20111028
  Transmission Date: 20120928
  Serious: No
  Sender: FDA-Public Use
  Company Number: US-ASTRAZENECA-2011SE65769

PATIENT
  Age: 40 Year
  Sex: Female

DRUGS (2)
  1. SEROQUEL [Suspect]
     Route: 048
  2. XANAX [Concomitant]

REACTIONS (7)
  - PANIC ATTACK [None]
  - DRY MOUTH [None]
  - DEPRESSION [None]
  - FEELING DRUNK [None]
  - FEELING ABNORMAL [None]
  - SOMNOLENCE [None]
  - ANXIETY [None]
